FAERS Safety Report 12453334 (Version 1)
Quarter: 2016Q2

REPORT INFORMATION
  Report Type: Report from Study
  Country: CH (occurrence: CH)
  Receive Date: 20160609
  Receipt Date: 20160609
  Transmission Date: 20160815
  Serious: Yes (Hospitalization)
  Sender: FDA-Public Use
  Company Number: CH-ABBVIE-16P-151-1641066-00

PATIENT
  Age: 77 Year
  Sex: Male

DRUGS (2)
  1. DUODOPA [Suspect]
     Active Substance: CARBIDOPA\LEVODOPA
     Indication: PARKINSON^S DISEASE
     Dosage: MD: 2.4 ML, CD DAY: 2.5 ML/H, ED: 1.0 ML; 16H THERAPY
     Route: 050
     Dates: start: 20160523, end: 20160525
  2. DUODOPA [Suspect]
     Active Substance: CARBIDOPA\LEVODOPA
     Dosage: MD: 2.4 ML, CD DAY: 2.5 ML/H, ED: 1.0 ML; 16 H THERAPY
     Route: 050

REACTIONS (6)
  - Confusional state [Not Recovered/Not Resolved]
  - Mental disorder [Unknown]
  - Confusional state [Unknown]
  - Intentional self-injury [Unknown]
  - Delirium [Unknown]
  - Device dislocation [Unknown]

NARRATIVE: CASE EVENT DATE: 201605
